FAERS Safety Report 7894464-9 (Version None)
Quarter: 2011Q4

REPORT INFORMATION
  Report Type: 
  Country: None (occurrence: None)
  Receive Date: 20111106
  Receipt Date: 20111021
  Transmission Date: 20120403
  Serious: No
  Sender: FDA-Public Use
  Company Number: US-ROXANE LABORATORIES, INC.-2011-RO-01262RO

PATIENT
  Sex: Male
  Weight: 95 kg

DRUGS (10)
  1. MELOXICAM [Concomitant]
     Indication: BACK PAIN
     Dosage: 15 MG
     Route: 048
  2. LEVOTHYROXINE SODIUM [Concomitant]
     Indication: HYPOTHYROIDISM
     Dosage: 25 MG
     Route: 048
  3. NEURONTIN [Concomitant]
     Indication: BACK PAIN
     Dosage: 300 MG
     Route: 048
  4. MORPHINE [Suspect]
     Indication: BACK PAIN
     Route: 048
  5. ULTRAM [Concomitant]
     Indication: BACK PAIN
     Route: 048
  6. LISINOPRIL [Concomitant]
     Indication: HYPERTENSION
     Dosage: 40 MG
     Route: 048
  7. LASIX [Concomitant]
     Dosage: 20 MG
  8. COREG [Concomitant]
     Indication: ATRIAL FIBRILLATION
     Route: 048
  9. COUMADIN [Concomitant]
     Indication: TRANSIENT ISCHAEMIC ATTACK
     Dosage: 6 MG
     Route: 048
  10. MORPHINE [Suspect]
     Indication: NEPHROLITHIASIS

REACTIONS (2)
  - DRUG INEFFECTIVE [None]
  - TENSION [None]
